FAERS Safety Report 7481260-X (Version None)
Quarter: 2011Q2

REPORT INFORMATION
  Report Type: 
  Country: None (occurrence: None)
  Receive Date: 20110512
  Receipt Date: 20110512
  Transmission Date: 20111010
  Serious: Yes (Other)
  Sender: FDA-Public Use
  Company Number: None

PATIENT
  Age: 77 Year
  Sex: Female

DRUGS (5)
  1. RITUXIMAB [Suspect]
     Dosage: 375 MG/M2
     Dates: start: 20110214, end: 20110215
  2. BENDAMUSTINE [Concomitant]
  3. ACYCLOVIR [Concomitant]
  4. AUGMENTIN [Concomitant]
  5. DAPSONE [Suspect]
     Indication: ANTIFUNGAL PROPHYLAXIS
     Dates: start: 20110214, end: 20110225

REACTIONS (2)
  - NEUTROPENIA [None]
  - RASH ERYTHEMATOUS [None]
